FAERS Safety Report 9227671 (Version 3)
Quarter: 2013Q3

REPORT INFORMATION
  Report Type: Spontaneous
  Country: US (occurrence: US)
  Receive Date: 20130412
  Receipt Date: 20130708
  Transmission Date: 20140515
  Serious: Yes (Hospitalization, Other)
  Sender: FDA-Public Use
  Company Number: US-BRISTOL-MYERS SQUIBB COMPANY-18772178

PATIENT
  Age: 57 Year
  Sex: Male

DRUGS (12)
  1. BYDUREON 2MG SUSPENSION [Suspect]
     Indication: DIABETES MELLITUS
     Route: 058
     Dates: start: 201212
  2. CENTRUM [Concomitant]
  3. MVI [Concomitant]
  4. CIALIS [Concomitant]
  5. FLAXSEED [Concomitant]
  6. GLIMEPIRIDE [Concomitant]
  7. IBUPROFEN [Concomitant]
  8. IRBESARTAN [Concomitant]
  9. METFORMIN [Concomitant]
  10. SIMVASTATIN [Concomitant]
  11. VITAMIN C [Concomitant]
  12. OMEPRAZOLE [Concomitant]

REACTIONS (3)
  - Osteoarthritis [Unknown]
  - Overdose [Unknown]
  - Product quality issue [Unknown]
